FAERS Safety Report 13919753 (Version 2)
Quarter: 2021Q4

REPORT INFORMATION
  Report Type: Spontaneous
  Country: CA (occurrence: CA)
  Receive Date: 20170830
  Receipt Date: 20211126
  Transmission Date: 20220303
  Serious: Yes (Disabling, Other)
  Sender: FDA-Public Use
  Company Number: CA-009507513-1708CAN010993

PATIENT
  Age: 56 Year
  Sex: Female
  Weight: 68.027 kg

DRUGS (2)
  1. INTRON A [Suspect]
     Active Substance: INTERFERON ALFA-2B
     Indication: Conjunctival neoplasm
     Dosage: 1.0 GTT, 4 EVERY 1 DAY
     Route: 047
     Dates: start: 20161201, end: 20161212
  2. HYLO [Concomitant]
     Dosage: UNK

REACTIONS (7)
  - Chemical burns of eye [Recovering/Resolving]
  - Eye irritation [Recovering/Resolving]
  - Ocular hyperaemia [Recovering/Resolving]
  - Blindness [Recovering/Resolving]
  - Photophobia [Recovering/Resolving]
  - Eye pain [Recovering/Resolving]
  - Condition aggravated [Recovering/Resolving]

NARRATIVE: CASE EVENT DATE: 20161202
